FAERS Safety Report 5602334-1 (Version None)
Quarter: 2008Q1

REPORT INFORMATION
  Report Type: 
  Country: None (occurrence: None)
  Receive Date: 20080125
  Receipt Date: 20080115
  Transmission Date: 20080703
  Serious: Yes (Hospitalization, Other)
  Sender: FDA-Public Use
  Company Number: CA-GENENTECH-254330

PATIENT
  Sex: Male
  Weight: 75 kg

DRUGS (1)
  1. OMALIZUMAB [Suspect]
     Indication: ASTHMA
     Dosage: 300 UNK, Q2W
     Route: 058
     Dates: start: 20070910

REACTIONS (4)
  - DYSGEUSIA [None]
  - DYSPNOEA [None]
  - HYPERTENSION [None]
  - SINUS CONGESTION [None]
